FAERS Safety Report 15070936 (Version 1)
Quarter: 2018Q2

REPORT INFORMATION
  Report Type: Report from Study
  Country: US (occurrence: US)
  Receive Date: 20180626
  Receipt Date: 20180626
  Transmission Date: 20180711
  Serious: No
  Sender: FDA-Public Use
  Company Number: US-AMGEN-USASL2016122848

PATIENT
  Age: 69 Year
  Sex: Female
  Weight: 120 kg

DRUGS (1)
  1. PROLIA [Suspect]
     Active Substance: DENOSUMAB
     Indication: OSTEOPOROSIS
     Dosage: UNK
     Route: 065

REACTIONS (7)
  - Fracture [Unknown]
  - Hyperlipidaemia [Unknown]
  - Menopausal symptoms [Unknown]
  - Gastrointestinal disorder [Unknown]
  - Anxiety [Unknown]
  - Hypertension [Unknown]
  - Depression [Unknown]
